FAERS Safety Report 17693169 (Version 2)
Quarter: 2020Q2

REPORT INFORMATION
  Report Type: Spontaneous
  Country: US (occurrence: US)
  Receive Date: 20200422
  Receipt Date: 20200427
  Transmission Date: 20200714
  Serious: No
  Sender: FDA-Public Use
  Company Number: US-ASTRAZENECA-2020SE51713

PATIENT
  Age: 74 Year
  Sex: Male
  Weight: 97.1 kg

DRUGS (5)
  1. PRAVASTATIN. [Concomitant]
     Active Substance: PRAVASTATIN
     Indication: BLOOD CHOLESTEROL ABNORMAL
     Route: 048
  2. LOSARTAN. [Concomitant]
     Active Substance: LOSARTAN
     Indication: ELECTROLYTE IMBALANCE
     Route: 048
     Dates: start: 2018
  3. POTACHLORIDE [Concomitant]
     Indication: DEHYDRATION
     Route: 048
     Dates: start: 2018
  4. BYDUREON BCISE [Suspect]
     Active Substance: EXENATIDE
     Indication: TYPE 2 DIABETES MELLITUS
     Route: 058
     Dates: start: 202002
  5. TAMSULOSIN [Concomitant]
     Active Substance: TAMSULOSIN
     Route: 048

REACTIONS (4)
  - Injection site pain [Recovered/Resolved]
  - Wrong technique in device usage process [Unknown]
  - Device leakage [Unknown]
  - Injection site mass [Not Recovered/Not Resolved]

NARRATIVE: CASE EVENT DATE: 202002
